FAERS Safety Report 4818286-8 (Version None)
Quarter: 2005Q3

REPORT INFORMATION
  Report Type: 
  Country: None (occurrence: None)
  Receive Date: 20050929
  Receipt Date: 20050701
  Transmission Date: 20060218
  Serious: No
  Sender: FDA-Public Use
  Company Number: 05P-163-0304830-00

PATIENT
  Age: 66 Year
  Sex: Female

DRUGS (10)
  1. HUMIRA [Suspect]
     Indication: RHEUMATOID ARTHRITIS
     Dosage: 40 MG, 1 IN 2 WK, SUBCUTANEOUS
     Route: 058
     Dates: start: 20050615, end: 20050701
  2. PREDNISONE [Concomitant]
  3. CALCIUM GLUCONATE [Concomitant]
  4. FUROSEMIDE [Concomitant]
  5. PIRBUTEROL ACETATE [Concomitant]
  6. ISOPHANE INSULIN [Concomitant]
  7. POTASSIUM [Concomitant]
  8. CYANOCOBALAMIN [Concomitant]
  9. ALDACTAZIDE-A [Concomitant]
  10. PROPACET 100 [Concomitant]

REACTIONS (3)
  - MALAISE [None]
  - NAUSEA [None]
  - RASH GENERALISED [None]
